FAERS Safety Report 25159797 (Version 1)
Quarter: 2025Q2

REPORT INFORMATION
  Report Type: Other
  Country: GB (occurrence: GB)
  Receive Date: 20250404
  Receipt Date: 20250404
  Transmission Date: 20250717
  Serious: Yes (Hospitalization, Other)
  Sender: STRIDES
  Company Number: GB-PHARMVIT-4556-3352-ER22-RN389

PATIENT
  Age: 46 Year
  Sex: Female

DRUGS (2)
  1. PREDNISOLONE [Interacting]
     Active Substance: PREDNISOLONE
     Indication: Behcet^s syndrome
     Route: 065
  2. PREDNISOLONE [Interacting]
     Active Substance: PREDNISOLONE
     Route: 065

REACTIONS (3)
  - Drug interaction [Recovered/Resolved]
  - Mycobacterium marinum infection [Recovered/Resolved]
  - Immunosuppression [Recovered/Resolved]
